FAERS Safety Report 24358512 (Version 1)
Quarter: 2024Q3

REPORT INFORMATION
  Report Type: Spontaneous
  Country: US (occurrence: US)
  Receive Date: 20240924
  Receipt Date: 20240924
  Transmission Date: 20241016
  Serious: Yes (Other)
  Sender: SANOFI AVENTIS
  Company Number: US-SA-2024SA274373

PATIENT
  Age: 50 Year
  Sex: Male

DRUGS (1)
  1. DUPIXENT [Suspect]
     Active Substance: DUPILUMAB
     Indication: Chronic rhinosinusitis with nasal polyps
     Dosage: UNK

REACTIONS (14)
  - Eosinophilic granulomatosis with polyangiitis [Unknown]
  - Cough [Unknown]
  - Dyspnoea [Unknown]
  - Haemoptysis [Unknown]
  - Condition aggravated [Unknown]
  - Haematuria [Unknown]
  - Proteinuria [Unknown]
  - Mucosal erosion [Unknown]
  - Bronchial ulceration [Unknown]
  - Petechiae [Unknown]
  - Eosinophilia [Unknown]
  - Respiratory tract inflammation [Unknown]
  - Mucosal haemorrhage [Unknown]
  - Asthma [Unknown]
